FAERS Safety Report 6841895-1 (Version None)
Quarter: 2010Q3

REPORT INFORMATION
  Report Type: 
  Country: None (occurrence: None)
  Receive Date: 20100714
  Receipt Date: 20070724
  Transmission Date: 20110219
  Serious: No
  Sender: FDA-Public Use
  Company Number: US-PFIZER INC-2007060102

PATIENT
  Sex: Female
  Weight: 59.09 kg

DRUGS (3)
  1. CHANTIX [Suspect]
     Indication: SMOKING CESSATION THERAPY
     Dates: start: 20070714
  2. MINOCYCLINE [Concomitant]
     Dates: start: 20070101
  3. ALL OTHER THERAPEUTIC PRODUCTS [Concomitant]
     Dates: start: 20070101

REACTIONS (3)
  - ABNORMAL DREAMS [None]
  - INSOMNIA [None]
  - MIDDLE INSOMNIA [None]
